FAERS Safety Report 8318875-2 (Version None)
Quarter: 2012Q2

REPORT INFORMATION
  Report Type: 
  Country: None (occurrence: None)
  Receive Date: 20120426
  Receipt Date: 20120426
  Transmission Date: 20120825
  Serious: Yes (Life-Threatening)
  Sender: FDA-Public Use
  Company Number: None

PATIENT
  Age: 61 Year
  Sex: Male
  Weight: 77.1115 kg

DRUGS (2)
  1. FLUPHENAZINE [Suspect]
     Indication: SCHIZOPHRENIA, PARANOID TYPE
     Dosage: 5MG 1 DAILY ORAL
     Route: 048
  2. BENZTROPINE MESYLATE [Concomitant]

REACTIONS (7)
  - JOINT RANGE OF MOTION DECREASED [None]
  - FEELING ABNORMAL [None]
  - JOINT INJURY [None]
  - CRUSH INJURY [None]
  - LOSS OF CONSCIOUSNESS [None]
  - FALL [None]
  - VOMITING [None]
